FAERS Safety Report 8511576-7 (Version None)
Quarter: 2012Q3

REPORT INFORMATION
  Report Type: 
  Country: None (occurrence: None)
  Receive Date: 20120710
  Receipt Date: 20120710
  Transmission Date: 20120928
  Serious: Yes (Hospitalization)
  Sender: FDA-Public Use
  Company Number: None

PATIENT
  Age: 65 Year
  Sex: Male
  Weight: 62.5964 kg

DRUGS (1)
  1. CYCLOBENAZPRINE [Suspect]
     Indication: PAIN
     Dosage: 10 MG, BID, PO
     Route: 048
     Dates: start: 20120315, end: 20120316

REACTIONS (2)
  - CONFUSIONAL STATE [None]
  - MENTAL STATUS CHANGES [None]
